FAERS Safety Report 10010951 (Version 1)
Quarter: 2014Q1

REPORT INFORMATION
  Report Type: Spontaneous
  Country: IN (occurrence: None)
  Receive Date: 20140311
  Receipt Date: 20140311
  Transmission Date: 20141002
  Serious: Yes (Life-Threatening)
  Sender: FDA-Public Use
  Company Number: SYM-2014-18085

PATIENT
  Age: 50 Year
  Sex: Male

DRUGS (3)
  1. METRONIDAZOLE [Suspect]
     Indication: LICHEN PLANUS
     Dosage: 2 IN 1 D
     Route: 048
  2. VITAMINS (VITAMINS /90003601/) (NULL) [Concomitant]
  3. TRIAMCINOLONE (TRIAMCINOLONE) (TRIAMCINOLONE) [Concomitant]

REACTIONS (1)
  - Stevens-Johnson syndrome [None]
